FAERS Safety Report 6104887-6 (Version None)
Quarter: 2009Q1

REPORT INFORMATION
  Report Type: 
  Country: None (occurrence: None)
  Receive Date: 20090304
  Receipt Date: 20090218
  Transmission Date: 20090719
  Serious: Yes (Hospitalization)
  Sender: FDA-Public Use
  Company Number: 231839K09USA

PATIENT
  Age: 38 Year
  Sex: Male

DRUGS (7)
  1. REBIF [Suspect]
     Indication: MULTIPLE SCLEROSIS
     Dosage: 44 MCG, 3 IN 1 WEEKS, SUBCUTANEOUS
     Route: 058
     Dates: start: 20080819
  2. ZOLOFT [Concomitant]
  3. BACLOFEN [Concomitant]
  4. FLOMAX (MORNIFLUMATE) [Concomitant]
  5. PROVIGIL [Concomitant]
  6. SIMVASTATIN [Concomitant]
  7. AMANTADINE HCL [Concomitant]

REACTIONS (2)
  - ROAD TRAFFIC ACCIDENT [None]
  - SPINAL FRACTURE [None]
